FAERS Safety Report 9040898 (Version 1)
Quarter: 2013Q1

REPORT INFORMATION
  Report Type: Spontaneous
  Country: US (occurrence: None)
  Receive Date: 20130123
  Receipt Date: 20130123
  Transmission Date: 20140127
  Serious: Yes (Life-Threatening, Hospitalization)
  Sender: FDA-Public Use
  Company Number: None

PATIENT
  Age: 64 Year
  Sex: Male
  Weight: 103.1 kg

DRUGS (2)
  1. SULFAMETHOXAZOLE/TRIMETHOPRIM [Suspect]
     Route: 048
     Dates: start: 20130103, end: 20130105
  2. LISINOPRIL [Suspect]
     Route: 048
     Dates: start: 20040524

REACTIONS (3)
  - Chronic obstructive pulmonary disease [None]
  - Dehydration [None]
  - Renal failure acute [None]
